FAERS Safety Report 25771015 (Version 1)
Quarter: 2025Q3

REPORT INFORMATION
  Report Type: Spontaneous
  Country: EU (occurrence: EU)
  Receive Date: 20250908
  Receipt Date: 20250908
  Transmission Date: 20251021
  Serious: Yes (Other)
  Sender: LEO PHARM
  Company Number: None

PATIENT
  Age: 57 Year
  Sex: Female
  Weight: 76 kg

DRUGS (1)
  1. ANZUPGO [Suspect]
     Active Substance: DELGOCITINIB
     Indication: Eczema
     Route: 003

REACTIONS (1)
  - Hypoglycaemia [Recovered/Resolved]
